FAERS Safety Report 12607869 (Version 1)
Quarter: 2016Q3

REPORT INFORMATION
  Report Type: Spontaneous
  Country: US (occurrence: US)
  Receive Date: 20160729
  Receipt Date: 20160729
  Transmission Date: 20161109
  Serious: No
  Sender: FDA-Public Use
  Company Number: US-TEVA-674505ACC

PATIENT
  Age: 31 Year
  Sex: Female
  Weight: 69.92 kg

DRUGS (1)
  1. PARAGARD T 380A [Suspect]
     Active Substance: COPPER
     Indication: CONTRACEPTION
     Dates: start: 20160608

REACTIONS (5)
  - Discomfort [Unknown]
  - Device expulsion [Recovered/Resolved]
  - Dyspareunia [Unknown]
  - Menorrhagia [Unknown]
  - Libido decreased [Unknown]

NARRATIVE: CASE EVENT DATE: 20160608
